FAERS Safety Report 25196877 (Version 5)
Quarter: 2025Q3

REPORT INFORMATION
  Report Type: Report from Study
  Country: CA (occurrence: CA)
  Receive Date: 20250415
  Receipt Date: 20250829
  Transmission Date: 20251021
  Serious: Yes (Other)
  Sender: TAKEDA
  Company Number: CA-TAKEDA-2024TUS061223

PATIENT
  Age: 48 Year
  Sex: Male

DRUGS (6)
  1. VEDOLIZUMAB [Suspect]
     Active Substance: VEDOLIZUMAB
     Indication: Colitis ulcerative
  2. VEDOLIZUMAB [Suspect]
     Active Substance: VEDOLIZUMAB
     Dosage: 300 MILLIGRAM, Q4WEEKS
     Dates: start: 20250421
  3. PREDNISONE [Concomitant]
     Active Substance: PREDNISONE
     Indication: Gout
  4. Salofalk [Concomitant]
  5. ALLOPURINOL [Concomitant]
     Active Substance: ALLOPURINOL
     Dosage: 100 MILLIGRAM, QD
  6. CANDESARTAN [Concomitant]
     Active Substance: CANDESARTAN
     Dosage: 16 MILLIGRAM, QD

REACTIONS (7)
  - Colitis ulcerative [Unknown]
  - Off label use [Unknown]
  - Diarrhoea [Unknown]
  - Stress [Unknown]
  - Weight increased [Unknown]
  - Gout [Unknown]
  - Arthralgia [Unknown]

NARRATIVE: CASE EVENT DATE: 20250421
